FAERS Safety Report 20469050 (Version 5)
Quarter: 2022Q3

REPORT INFORMATION
  Report Type: Spontaneous
  Country: JP (occurrence: JP)
  Receive Date: 20220214
  Receipt Date: 20220714
  Transmission Date: 20221027
  Serious: Yes (Other)
  Sender: FDA-Public Use
  Company Number: JP-GSKNCCC-Case-01417915_AE-54661

PATIENT

DRUGS (40)
  1. SOTROVIMAB [Suspect]
     Active Substance: SOTROVIMAB
     Dosage: 500 MG/100 ML/30 MIN
     Dates: start: 20220129, end: 20220129
  2. AMLODIPINE BESYLATE [Concomitant]
     Active Substance: AMLODIPINE BESYLATE
     Indication: Hypertension
     Dosage: 7.5 MG, QD
     Dates: end: 20220202
  3. SODIUM CHLORIDE [Concomitant]
     Active Substance: SODIUM CHLORIDE
     Dosage: 100 ML
     Dates: start: 20220129
  4. SODIUM CHLORIDE [Concomitant]
     Active Substance: SODIUM CHLORIDE
     Dosage: 100 ML, TID
     Dates: start: 20220202, end: 20220202
  5. SODIUM CHLORIDE [Concomitant]
     Active Substance: SODIUM CHLORIDE
     Dosage: 100 ML, BID
     Dates: start: 20220203, end: 20220208
  6. SODIUM CHLORIDE [Concomitant]
     Active Substance: SODIUM CHLORIDE
     Dosage: 100 ML, TID
     Dates: start: 20220209, end: 20220209
  7. SODIUM CHLORIDE [Concomitant]
     Active Substance: SODIUM CHLORIDE
     Dosage: 100 ML, QID
     Dates: start: 20220210, end: 20220211
  8. SODIUM CHLORIDE [Concomitant]
     Active Substance: SODIUM CHLORIDE
     Dosage: 100 ML, BD
     Dates: start: 20220212, end: 20220216
  9. SODIUM CHLORIDE [Concomitant]
     Active Substance: SODIUM CHLORIDE
     Dosage: 100 ML, QD
     Dates: start: 20220218
  10. SODIUM CHLORIDE [Concomitant]
     Active Substance: SODIUM CHLORIDE
     Dosage: 100 ML, BID
     Dates: start: 20220219, end: 20220221
  11. MAGNESIUM OXIDE [Concomitant]
     Active Substance: MAGNESIUM OXIDE
     Dosage: 1 G, QD, BEFORE BEDTIME
     Dates: end: 20220201
  12. BIPERIDEN HYDROCHLORIDE [Concomitant]
     Active Substance: BIPERIDEN HYDROCHLORIDE
     Dosage: 1.5 MG, BID, AFTER BREAKFAST AND BEFORE BEDTIME
     Dates: end: 20220201
  13. BIPERIDEN HYDROCHLORIDE [Concomitant]
     Active Substance: BIPERIDEN HYDROCHLORIDE
     Dosage: 1.5 MG, QD
     Dates: start: 20220202, end: 20220202
  14. FLUNITRAZEPAM [Concomitant]
     Active Substance: FLUNITRAZEPAM
     Dosage: 2 MG, QD BEFORE BEDTIME
     Dates: end: 20220201
  15. LULLAN TABLETS [Concomitant]
     Dosage: 4 MG AFTER BREAKFAST, 16 MG BEFORE BEDTIME, BID
     Dates: end: 20220201
  16. LULLAN TABLETS [Concomitant]
     Dosage: 4 MG, QD
     Dates: start: 20220202, end: 20220202
  17. LULLAN TABLETS [Concomitant]
     Dosage: 4 MG, QD
     Dates: start: 20220228, end: 20220228
  18. AMOBAN TABLETS [Concomitant]
     Dosage: 10 MG, QD
     Dates: end: 20220201
  19. FAMOTIDINE [Concomitant]
     Active Substance: FAMOTIDINE
     Dosage: 20 MG, QD
     Dates: end: 20220202
  20. RISPERIDONE [Concomitant]
     Active Substance: RISPERIDONE
     Dosage: 1 ML
     Dates: start: 20210106
  21. BROTIZOLAM [Concomitant]
     Active Substance: BROTIZOLAM
     Dosage: 0.25 MG
     Dates: start: 20220119, end: 20220119
  22. SODIUM PICOSULFATE ORAL SOLUTION [Concomitant]
     Dosage: ENTIRE DOSE, BEFORE BEDTIME
     Dates: start: 20220217, end: 20220217
  23. DISTILLED WATER [Concomitant]
     Dosage: 40 ML
     Dates: start: 20220202, end: 20220202
  24. DISTILLED WATER [Concomitant]
     Dosage: 20 ML
     Dates: start: 20220203, end: 20220211
  25. DISTILLED WATER [Concomitant]
     Dosage: 500 ML
     Route: 058
     Dates: start: 20220228, end: 20220228
  26. GASTER [Concomitant]
     Active Substance: FAMOTIDINE
     Dosage: 2 ML
     Dates: start: 20220208, end: 20220216
  27. AMPICILLIN SODIUM\SULBACTAM SODIUM [Concomitant]
     Active Substance: AMPICILLIN SODIUM\SULBACTAM SODIUM
     Dosage: 3 G, QD
     Dates: start: 20220209
  28. AMPICILLIN SODIUM\SULBACTAM SODIUM [Concomitant]
     Active Substance: AMPICILLIN SODIUM\SULBACTAM SODIUM
     Dosage: 3 G, BID
     Dates: start: 20220210, end: 20220216
  29. AMPICILLIN SODIUM\SULBACTAM SODIUM [Concomitant]
     Active Substance: AMPICILLIN SODIUM\SULBACTAM SODIUM
     Dosage: 3 G, QD
     Dates: start: 20220218
  30. AMPICILLIN SODIUM\SULBACTAM SODIUM [Concomitant]
     Active Substance: AMPICILLIN SODIUM\SULBACTAM SODIUM
     Dosage: 3 G, BID
     Dates: start: 20220219, end: 20220221
  31. DEXAMETHASONE SODIUM PHOSPHATE [Concomitant]
     Active Substance: DEXAMETHASONE SODIUM PHOSPHATE
     Dosage: 2 ML
     Dates: start: 20220202, end: 20220211
  32. AMINO ACIDS\DEXTROSE\ELECTROLYTES NOS\VITAMINS [Concomitant]
     Active Substance: AMINO ACIDS\DEXTROSE\ELECTROLYTES NOS\VITAMINS
     Dosage: 500 ML, BID
     Dates: start: 20220211, end: 20220221
  33. AMINO ACIDS\DEXTROSE\ELECTROLYTES NOS\VITAMINS [Concomitant]
     Active Substance: AMINO ACIDS\DEXTROSE\ELECTROLYTES NOS\VITAMINS
     Dosage: 500 ML, QD
     Dates: start: 20220222, end: 20220223
  34. AMINO ACIDS\DEXTROSE\ELECTROLYTES NOS\VITAMINS [Concomitant]
     Active Substance: AMINO ACIDS\DEXTROSE\ELECTROLYTES NOS\VITAMINS
     Dosage: 500 ML, QD
     Dates: start: 20220224, end: 20220227
  35. ELECTROLYTES NOS [Concomitant]
     Active Substance: ELECTROLYTES NOS
     Dosage: 500 ML, QD
     Dates: start: 20220202, end: 20220203
  36. ELECTROLYTES NOS [Concomitant]
     Active Substance: ELECTROLYTES NOS
     Dosage: 500 ML, QD
     Dates: start: 20220204, end: 20220204
  37. ELECTROLYTES NOS [Concomitant]
     Active Substance: ELECTROLYTES NOS
     Dosage: 500 ML, QD
     Dates: start: 20220205, end: 20220209
  38. ELECTROLYTES NOS [Concomitant]
     Active Substance: ELECTROLYTES NOS
     Dosage: 500 ML, QD
     Dates: start: 20220210, end: 20220221
  39. ELECTROLYTES NOS [Concomitant]
     Active Substance: ELECTROLYTES NOS
     Dosage: 500 ML, QD
     Dates: start: 20220222, end: 20220224
  40. HEPARIN [Concomitant]
     Active Substance: HEPARIN SODIUM
     Dosage: 15 ML, QD
     Dates: start: 20220224, end: 20220227

REACTIONS (9)
  - Hypothermia [Unknown]
  - Depressed level of consciousness [Unknown]
  - Bradycardia [Unknown]
  - COVID-19 pneumonia [Unknown]
  - COVID-19 [Unknown]
  - Malaise [Unknown]
  - Decreased appetite [Unknown]
  - Peripheral coldness [Unknown]
  - Pyrexia [Recovered/Resolved]

NARRATIVE: CASE EVENT DATE: 20220201
